FAERS Safety Report 8795735 (Version 1)
Quarter: 2012Q4

REPORT INFORMATION
  Report Type: 
  Country: US (occurrence: US)
  Receive Date: 20120920
  Receipt Date: 20120920
  Transmission Date: 20130627
  Serious: Yes (Hospitalization)
  Sender: FDA-Public Use
  Company Number: US-009507513-2010SP006068

PATIENT
  Age: 39 None
  Sex: Female
  Weight: 104.33 kg

DRUGS (2)
  1. NUVARING [Suspect]
     Indication: CONTRACEPTION
     Dates: start: 200709, end: 200802
  2. COUMADIN [Suspect]
     Indication: DEEP VEIN THROMBOSIS
     Dosage: 5 mg, UNK
     Dates: start: 2008

REACTIONS (10)
  - Hypercoagulation [Unknown]
  - Deep vein thrombosis [Unknown]
  - Antiphospholipid syndrome [Not Recovered/Not Resolved]
  - Post thrombotic syndrome [Recovered/Resolved]
  - Acute sinusitis [Recovering/Resolving]
  - Spinal osteoarthritis [Unknown]
  - Urinary tract infection staphylococcal [Unknown]
  - Therapeutic response increased [Unknown]
  - Constipation [Unknown]
  - Menorrhagia [Unknown]
